FAERS Safety Report 18053574 (Version 3)
Quarter: 2021Q3

REPORT INFORMATION
  Report Type: Spontaneous
  Country: JP (occurrence: JP)
  Receive Date: 20200722
  Receipt Date: 20210830
  Transmission Date: 20211014
  Serious: Yes (Hospitalization, Other)
  Sender: FDA-Public Use
  Company Number: JP-ELI_LILLY_AND_COMPANY-JP202007008166

PATIENT
  Age: 77 Year
  Sex: Female

DRUGS (28)
  1. UPTRAVI [Suspect]
     Active Substance: SELEXIPAG
     Dosage: 0.4 MG, DAILY
     Route: 048
     Dates: start: 20180130, end: 20180213
  2. AUGMENTIN [Suspect]
     Active Substance: AMOXICILLIN\CLAVULANATE POTASSIUM
     Indication: LYMPHOMA
     Dosage: UNK, TID
     Route: 048
     Dates: start: 20210204, end: 20210206
  3. RISEDRONATE NA [Concomitant]
     Active Substance: RISEDRONATE SODIUM
     Dosage: UNK, UNKNOWN
  4. NEUROVITAN [CYANOCOBALAMIN;OCTOTIAMINE;PYRIDO [Concomitant]
     Indication: NEUROPATHY PERIPHERAL
     Dosage: 2 DOSAGE FORM, UNKNOWN
  5. FOLIAMIN [FOLIC ACID] [Concomitant]
     Active Substance: FOLIC ACID
     Indication: FOLATE DEFICIENCY
     Dosage: 5 MG, UNKNOWN
  6. FUROSEMIDE. [Concomitant]
     Active Substance: FUROSEMIDE
     Indication: CARDIAC FAILURE
     Dosage: 20 MG, UNKNOWN
  7. ETODOLAC. [Concomitant]
     Active Substance: ETODOLAC
     Indication: SJOGREN^S SYNDROME
     Dosage: UNK, UNKNOWN
  8. BISOPROLOL FUMARATE. [Concomitant]
     Active Substance: BISOPROLOL FUMARATE
     Indication: CARDIAC FAILURE
     Dosage: UNK, UNKNOWN
     Dates: start: 20210218, end: 20210309
  9. AMLODIPINE [AMLODIPINE BESILATE] [Concomitant]
     Active Substance: AMLODIPINE BESYLATE
     Indication: HYPERTENSION
     Dosage: 2.5 MG, UNKNOWN
     Dates: start: 20180423
  10. UPTRAVI [Suspect]
     Active Substance: SELEXIPAG
     Indication: PULMONARY ARTERIAL HYPERTENSION
     Dosage: 0.2 MG, DAILY
     Route: 048
     Dates: start: 20180116, end: 20180129
  11. RISEDRONATE NA [Concomitant]
     Active Substance: RISEDRONATE SODIUM
     Indication: OSTEOPOROSIS
     Dosage: UNK, UNKNOWN
  12. UPTRAVI [Suspect]
     Active Substance: SELEXIPAG
     Dosage: 0.6 MG, UNKNOWN
     Route: 048
     Dates: start: 20180214, end: 20180226
  13. OPSUMIT [Concomitant]
     Active Substance: MACITENTAN
     Indication: PULMONARY ARTERIAL HYPERTENSION
     Dosage: 10 MG, UNKNOWN
     Route: 065
  14. TAKECAB [Concomitant]
     Active Substance: VONOPRAZAN FUMARATE
     Indication: GASTROOESOPHAGEAL REFLUX DISEASE
     Dosage: 10 MG
  15. TIMOLOL XE [Concomitant]
     Active Substance: TIMOLOL
     Indication: GLAUCOMA
     Dosage: UNK
  16. MUCOSOLVAN L [Concomitant]
     Active Substance: AMBROXOL HYDROCHLORIDE
     Indication: INTERSTITIAL LUNG DISEASE
     Dosage: 45 MG
  17. REBAMIPIDE [Concomitant]
     Active Substance: REBAMIPIDE
     Indication: CHRONIC GASTRITIS
     Dosage: UNK, UNKNOWN
  18. ADCIRCA [Suspect]
     Active Substance: TADALAFIL
     Indication: PULMONARY ARTERIAL HYPERTENSION
     Dosage: 20 MG, DAILY
     Route: 065
  19. PREDONINE [Concomitant]
     Active Substance: PREDNISOLONE
     Indication: SYSTEMIC SCLERODERMA
     Dosage: 5 MG, UNKNOWN
     Dates: start: 20160726
  20. TOCOPHEROL [Concomitant]
     Active Substance: TOCOPHEROL
     Indication: HYPERLIPIDAEMIA
     Dosage: 300 MG
  21. EPADEL?S [Concomitant]
     Active Substance: ICOSAPENT ETHYL
     Indication: HYPERLIPIDAEMIA
     Dosage: UNK
  22. PANIMYCIN [Concomitant]
     Active Substance: DIBEKACIN SULFATE
     Indication: CONJUNCTIVITIS
     Dosage: UNK, UNKNOWN
     Dates: start: 20180717
  23. UPTRAVI [Suspect]
     Active Substance: SELEXIPAG
     Dosage: 0.8 MG, DAILY
     Route: 048
     Dates: start: 20180227
  24. EDIROL [Concomitant]
     Active Substance: ELDECALCITOL
     Indication: OSTEOPOROSIS
     Dosage: 0.75 UG, UNKNOWN
  25. MUCOFILIN [Concomitant]
     Active Substance: ACETYLCYSTEINE
     Indication: INTERSTITIAL LUNG DISEASE
     Dosage: UNK, UNKNOWN
  26. FERROMIA [Concomitant]
     Active Substance: SODIUM FERROUS CITRATE
     Indication: ANAEMIA MACROCYTIC
     Dosage: UNK, UNKNOWN
     Dates: start: 20200526
  27. GASMOTIN [Concomitant]
     Active Substance: MOSAPRIDE CITRATE
     Indication: CHRONIC GASTRITIS
     Dosage: UNK, UNKNOWN
  28. CAMOSTAT MESILATE [Concomitant]
     Active Substance: CAMOSTAT MESYLATE
     Indication: PANCREATITIS CHRONIC
     Dosage: 300 MG

REACTIONS (13)
  - Pericoronitis [Recovered/Resolved]
  - Dyspnoea [Recovered/Resolved]
  - Oesophageal candidiasis [Recovering/Resolving]
  - Hypotension [Recovering/Resolving]
  - Left ventricular failure [Recovering/Resolving]
  - Faeces soft [Recovered/Resolved]
  - Extranodal marginal zone B-cell lymphoma (MALT type) [Recovered/Resolved]
  - Hypotension [Recovering/Resolving]
  - Haemoglobin decreased [Recovering/Resolving]
  - Clostridium difficile colitis [Recovered/Resolved]
  - Diarrhoea [Recovered/Resolved]
  - Dental caries [Recovered/Resolved]
  - Varicose vein [Recovering/Resolving]

NARRATIVE: CASE EVENT DATE: 2018
